FAERS Safety Report 25383741 (Version 1)
Quarter: 2025Q2

REPORT INFORMATION
  Report Type: Spontaneous
  Country: US (occurrence: US)
  Receive Date: 20250602
  Receipt Date: 20250602
  Transmission Date: 20250716
  Serious: Yes (Other)
  Sender: AUROBINDO
  Company Number: US-AUROBINDO-AUR-APL-2024-044844

PATIENT
  Age: 56 Year

DRUGS (3)
  1. APIXABAN [Suspect]
     Active Substance: APIXABAN
     Indication: Anticoagulation drug level therapeutic
     Route: 065
  2. SPIRONOLACTONE [Suspect]
     Active Substance: SPIRONOLACTONE
     Indication: Hormone therapy
     Route: 065
  3. ESTROGENS [Suspect]
     Active Substance: ESTROGENS
     Indication: Hormone therapy
     Route: 065

REACTIONS (3)
  - Hypoxia [Unknown]
  - Myelopathy [Unknown]
  - Hypotension [Unknown]
